FAERS Safety Report 14772114 (Version 2)
Quarter: 2018Q2

REPORT INFORMATION
  Report Type: Report from Study
  Country: None (occurrence: FR)
  Receive Date: 20180417
  Receipt Date: 20180430
  Transmission Date: 20180711
  Serious: Yes (Other)
  Sender: FDA-Public Use
  Company Number: FR-ABBVIE-18K-056-2320720-00

PATIENT
  Age: 65 Year
  Sex: Male

DRUGS (1)
  1. HUMIRA [Suspect]
     Active Substance: ADALIMUMAB
     Indication: AXIAL SPONDYLOARTHRITIS
     Dosage: W0: 40 MG??W2: 40 MG
     Route: 058
     Dates: start: 20180411, end: 20180412

REACTIONS (9)
  - Hypertension [Unknown]
  - Tremor [Unknown]
  - Dysphagia [Unknown]
  - Dyspepsia [Unknown]
  - Dysgeusia [Not Recovered/Not Resolved]
  - Paraesthesia [Unknown]
  - Feeling cold [Unknown]
  - Vision blurred [Unknown]
  - Pyrexia [Unknown]

NARRATIVE: CASE EVENT DATE: 20180411
